FAERS Safety Report 5905149-X (Version None)
Quarter: 2008Q3

REPORT INFORMATION
  Report Type: 
  Country: None (occurrence: None)
  Receive Date: 20080909
  Receipt Date: 20071106
  Transmission Date: 20090109
  Serious: No
  Sender: FDA-Public Use
  Company Number: 163-20785-07110459

PATIENT
  Age: 52 Year
  Sex: Male

DRUGS (1)
  1. THALOMID [Suspect]
     Indication: BRAIN NEOPLASM MALIGNANT
     Dosage: 200 MG, 1 IN 1 D, ORAL
     Route: 048
     Dates: start: 20070502

REACTIONS (1)
  - BRAIN NEOPLASM [None]
